FAERS Safety Report 11959111 (Version 2)
Quarter: 2016Q1

REPORT INFORMATION
  Report Type: Spontaneous
  Country: FR (occurrence: FR)
  Receive Date: 20160126
  Receipt Date: 20160328
  Transmission Date: 20160526
  Serious: Yes (Hospitalization)
  Sender: FDA-Public Use
  Company Number: FR-ROCHE-1699956

PATIENT
  Age: 68 Year
  Sex: Male

DRUGS (16)
  1. ZOLPIDEM [Concomitant]
     Active Substance: ZOLPIDEM\ZOLPIDEM TARTRATE
  2. KARDEGIC [Concomitant]
     Active Substance: ASPIRIN LYSINE
  3. LEVACT (FRANCE) [Suspect]
     Active Substance: BENDAMUSTINE HYDROCHLORIDE
     Indication: CHRONIC LYMPHOCYTIC LEUKAEMIA
     Dosage: SECOND CYCLE OF CHEMOTHERAPY
     Route: 041
     Dates: start: 20151119, end: 20151120
  4. EPREX [Concomitant]
     Active Substance: ERYTHROPOIETIN
     Dosage: THERAPY RECEIVED ON 12/NOV/2015
     Route: 065
  5. MABTHERA [Suspect]
     Active Substance: RITUXIMAB
     Indication: CHRONIC LYMPHOCYTIC LEUKAEMIA
     Dosage: SECOND CYCLE OF CHEMOTHERAPY
     Route: 041
     Dates: start: 20151119, end: 20151120
  6. LEVACT (FRANCE) [Suspect]
     Active Substance: BENDAMUSTINE HYDROCHLORIDE
     Dosage: FIRST CYCLE OF CHEMOTHERAPY
     Route: 041
     Dates: start: 20151008, end: 20151009
  7. SOLU-MEDROL [Concomitant]
     Active Substance: METHYLPREDNISOLONE SODIUM SUCCINATE
     Dosage: FIRST CYCLE OF CHEMOTHERAPY
     Route: 065
     Dates: start: 20151008, end: 20151009
  8. ZOPHREN [Concomitant]
     Active Substance: ONDANSETRON
     Dosage: FIRST CYCLE OF CHEMOTHERAPY
     Route: 065
     Dates: start: 20151008, end: 20151009
  9. FLECAINE [Concomitant]
     Active Substance: FLECAINIDE
  10. ZOCOR [Concomitant]
     Active Substance: SIMVASTATIN
  11. BACTRIM [Concomitant]
     Active Substance: SULFAMETHOXAZOLE\TRIMETHOPRIM
  12. MABTHERA [Suspect]
     Active Substance: RITUXIMAB
     Dosage: FIRST CYCLE OF CHEMOTHERAPY
     Route: 042
     Dates: start: 20151008, end: 20151009
  13. ZARZIO [Concomitant]
     Active Substance: FILGRASTIM
     Route: 065
     Dates: start: 20151110, end: 20151114
  14. VALACICLOVIR [Concomitant]
     Active Substance: VALACYCLOVIR HYDROCHLORIDE
  15. XYZALL [Concomitant]
     Active Substance: LEVOCETIRIZINE DIHYDROCHLORIDE
     Dosage: FIRST CYCLE OF CHEMOTHERAPY RECEIVED ON 08/OCT/2015 AND 09/OCT/2015
     Route: 065
  16. APROVEL [Concomitant]
     Active Substance: IRBESARTAN

REACTIONS (1)
  - Dermatitis exfoliative [Recovered/Resolved]

NARRATIVE: CASE EVENT DATE: 20151121
